FAERS Safety Report 19397749 (Version 1)
Quarter: 2021Q2

REPORT INFORMATION
  Report Type: Spontaneous
  Country: CA (occurrence: CA)
  Receive Date: 20210610
  Receipt Date: 20210610
  Transmission Date: 20210717
  Serious: Yes (Other)
  Sender: FDA-Public Use
  Company Number: CA-ORGANON-1701CAN012407

PATIENT
  Sex: Male

DRUGS (19)
  1. ADVAIR HFA [Suspect]
     Active Substance: FLUTICASONE PROPIONATE\SALMETEROL XINAFOATE
     Dosage: 2 PUFF (S) AT UNKNOWN FREQUENCY
     Route: 065
     Dates: start: 201009, end: 201009
  2. ADVAIR HFA [Suspect]
     Active Substance: FLUTICASONE PROPIONATE\SALMETEROL XINAFOATE
     Dosage: 2 PUFF (S) TWICE DAILY (4 PUFF (S) DAILY)
     Route: 065
     Dates: start: 20110401, end: 201104
  3. ADVAIR HFA [Suspect]
     Active Substance: FLUTICASONE PROPIONATE\SALMETEROL XINAFOATE
     Dosage: 2 PUFF (S) TWICE DAILY (4 PUFF (S) DAILY)
     Route: 065
     Dates: start: 201009, end: 20101029
  4. ADVAIR HFA [Suspect]
     Active Substance: FLUTICASONE PROPIONATE\SALMETEROL XINAFOATE
     Dosage: 2 PUFF (S) TWICE DAILY (4 PUFF (S) DAILY)
     Route: 065
     Dates: start: 20101105, end: 20110401
  5. FLUTICASONE PROPIONATE. [Suspect]
     Active Substance: FLUTICASONE PROPIONATE
     Dosage: 2 DOSAGE FORM, 2 EVERY 1DAY
     Route: 065
     Dates: start: 201004, end: 201004
  6. SINGULAIR [Suspect]
     Active Substance: MONTELUKAST SODIUM
     Indication: COUGH
     Dosage: UNK
     Route: 065
     Dates: start: 201001, end: 201107
  7. ADVAIR HFA [Suspect]
     Active Substance: FLUTICASONE PROPIONATE\SALMETEROL XINAFOATE
     Dosage: 2 PUFF (S) TWICE DAILY (4 PUFF (S) DAILY)
     Route: 065
     Dates: start: 20101029, end: 20101105
  8. ALVESCO [Suspect]
     Active Substance: CICLESONIDE
     Dosage: 1 PUFF (S) 3 TIMES DAILY
     Route: 065
     Dates: start: 201111, end: 201111
  9. ALVESCO [Suspect]
     Active Substance: CICLESONIDE
     Dosage: 1 PUFF (S) ONCE DAILY
     Route: 065
     Dates: start: 201111, end: 201304
  10. ALVESCO [Suspect]
     Active Substance: CICLESONIDE
     Dosage: 1 PUFF (S)
     Route: 065
     Dates: start: 201402, end: 201405
  11. ADVAIR HFA [Suspect]
     Active Substance: FLUTICASONE PROPIONATE\SALMETEROL XINAFOATE
     Indication: COUGH
     Dosage: 2 PUFF (S) TWICE DAILY (4 PUFF (S) DAILY)
     Route: 065
     Dates: start: 201007, end: 201007
  12. ALVESCO [Suspect]
     Active Substance: CICLESONIDE
     Indication: PRODUCT USED FOR UNKNOWN INDICATION
     Dosage: 1 PUFF (S) ONCE DAILY
     Route: 065
     Dates: start: 201110, end: 201111
  13. ALVESCO [Suspect]
     Active Substance: CICLESONIDE
     Dosage: UNKNOWN DOSE AS NEEDED
     Route: 065
     Dates: start: 201505
  14. FLUTICASONE PROPIONATE. [Suspect]
     Active Substance: FLUTICASONE PROPIONATE
     Indication: PRODUCT USED FOR UNKNOWN INDICATION
     Dosage: 1 DOSAGE FORM, 2 EVERY 1DAY
     Route: 055
     Dates: start: 201001, end: 201004
  15. ALVESCO [Suspect]
     Active Substance: CICLESONIDE
     Dosage: UNKNOWN DOSE AS NEEDED
     Route: 065
     Dates: start: 201304, end: 201402
  16. ALVESCO [Suspect]
     Active Substance: CICLESONIDE
     Dosage: 1 PUFF (S) TWICE DAILY
     Route: 065
     Dates: start: 201111, end: 201111
  17. ALVESCO [Suspect]
     Active Substance: CICLESONIDE
     Dosage: 1 PUFF (S) AS NEEDED
     Dates: start: 201405, end: 201505
  18. ADVAIR HFA [Suspect]
     Active Substance: FLUTICASONE PROPIONATE\SALMETEROL XINAFOATE
     Indication: PRODUCT USED FOR UNKNOWN INDICATION
     Dosage: 1 PUFF TWICE DAILY (4 PUFFS DAILY)
     Route: 065
     Dates: start: 201004, end: 201007
  19. ADVAIR HFA [Suspect]
     Active Substance: FLUTICASONE PROPIONATE\SALMETEROL XINAFOATE
     Dosage: 2 PUFF (S) AT UNKNOWN FREQUENCY
     Route: 065
     Dates: start: 201007, end: 201009

REACTIONS (11)
  - Arthralgia [Unknown]
  - Cough [Unknown]
  - Off label use [Unknown]
  - Upper respiratory tract infection [Unknown]
  - Pain in extremity [Unknown]
  - Cardiovascular disorder [Not Recovered/Not Resolved]
  - Condition aggravated [Unknown]
  - Pneumonia [Unknown]
  - Prescribed overdose [Unknown]
  - Influenza [Unknown]
  - Intentional product misuse [Unknown]

NARRATIVE: CASE EVENT DATE: 201007
